FAERS Safety Report 12400632 (Version 2)
Quarter: 2016Q2

REPORT INFORMATION
  Report Type: Spontaneous
  Country: US (occurrence: US)
  Receive Date: 20160525
  Receipt Date: 20160525
  Transmission Date: 20160815
  Serious: No
  Sender: FDA-Public Use
  Company Number: US-SA-2015SA162501

PATIENT
  Age: 55 Year
  Sex: Male

DRUGS (2)
  1. LANTUS SOLOSTAR [Suspect]
     Active Substance: INSULIN GLARGINE
     Indication: TYPE 2 DIABETES MELLITUS
     Route: 065
     Dates: start: 2002, end: 2002
  2. SOLOSTAR [Concomitant]
     Active Substance: DEVICE
     Dates: start: 2002, end: 2002

REACTIONS (1)
  - Scab [Unknown]

NARRATIVE: CASE EVENT DATE: 2002
